FAERS Safety Report 6411045-4 (Version None)
Quarter: 2009Q4

REPORT INFORMATION
  Report Type: 
  Country: None (occurrence: None)
  Receive Date: 20091021
  Receipt Date: 20091021
  Transmission Date: 20100525
  Serious: Yes (Hospitalization, Other)
  Sender: FDA-Public Use
  Company Number: None

PATIENT
  Age: 38 Year
  Sex: Female
  Weight: 31.7518 kg

DRUGS (5)
  1. DIVALPROEX SODIUM [Suspect]
     Indication: EPILEPSY
     Dosage: 1, 000 MG DAILY AT BEDTIME PO
     Route: 048
     Dates: start: 20090610, end: 20091019
  2. CLONAZEPAM [Concomitant]
  3. QUETIAPINE [Concomitant]
  4. TRAZODONE [Concomitant]
  5. PROPRANOLOL [Concomitant]

REACTIONS (3)
  - CONDITION AGGRAVATED [None]
  - CONVULSION [None]
  - PANCYTOPENIA [None]
